FAERS Safety Report 6013108-4 (Version None)
Quarter: 2008Q4

REPORT INFORMATION
  Report Type: 
  Country: None (occurrence: None)
  Receive Date: 20081219
  Receipt Date: 20081212
  Transmission Date: 20090506
  Serious: Yes (Hospitalization)
  Sender: FDA-Public Use
  Company Number: US-BIOGENIDEC-2008BI030808

PATIENT
  Age: 36 Year
  Sex: Female

DRUGS (2)
  1. AVONEX [Suspect]
     Indication: MULTIPLE SCLEROSIS
     Route: 030
     Dates: start: 20020214
  2. AVONEX [Suspect]
     Route: 030

REACTIONS (5)
  - DEHYDRATION [None]
  - DRUG EXPOSURE DURING PREGNANCY [None]
  - HYPERTENSION [None]
  - PREGNANCY [None]
  - SHORTENED CERVIX [None]
